FAERS Safety Report 10412124 (Version 2)
Quarter: 2014Q4

REPORT INFORMATION
  Report Type: Other
  Country: IT (occurrence: IT)
  Receive Date: 20140827
  Receipt Date: 20141209
  Transmission Date: 20150528
  Serious: Yes (Death)
  Sender: FDA-Public Use
  Company Number: IT-SUN PHARMACEUTICAL INDUSTRIES LTD-2014SUN01915

PATIENT
  Age: 66 Year
  Sex: Male
  Weight: 85 kg

DRUGS (4)
  1. OXALIPLATINO SUN 5 MG/ML, CONCENTRATO PER SOLUZIONE PER INFUSIONE [Suspect]
     Active Substance: OXALIPLATIN
     Indication: ADENOCARCINOMA OF COLON
     Dosage: TOTAL
     Route: 042
     Dates: start: 20140723, end: 20140723
  2. RANITIDINE [Concomitant]
     Active Substance: RANITIDINE\RANITIDINE HYDROCHLORIDE
     Indication: PRODUCT USED FOR UNKNOWN INDICATION
     Route: 042
     Dates: start: 20140723, end: 20140723
  3. ALOXI 250 MCG SOLUZIONE INIETTABILE USO ENDOVENOSO 5 ML FLACONCINO VET [Concomitant]
     Indication: NAUSEA
     Dosage: 250 UG
     Route: 042
     Dates: start: 20140723, end: 20140723
  4. DESAMETASONE 21-FOSFATO DISODICO [Concomitant]
     Indication: ANTIINFLAMMATORY THERAPY
     Dosage: 8 MG
     Route: 042
     Dates: start: 20140723, end: 20140723

REACTIONS (3)
  - Infusion related reaction [None]
  - Fall [None]
  - Ventricular fibrillation [Fatal]

NARRATIVE: CASE EVENT DATE: 20140723
